FAERS Safety Report 25412128 (Version 1)
Quarter: 2025Q2

REPORT INFORMATION
  Report Type: Spontaneous
  Country: IT (occurrence: IT)
  Receive Date: 20250609
  Receipt Date: 20250609
  Transmission Date: 20250716
  Serious: Yes (Death, Hospitalization, Other)
  Sender: RANBAXY
  Company Number: IT-SUN PHARMACEUTICAL INDUSTRIES INC-2025R1-510768

PATIENT
  Age: 49 Year
  Sex: Female

DRUGS (3)
  1. MORPHINE [Suspect]
     Active Substance: MORPHINE
     Indication: Pain
     Dosage: 0.3 MILLIGRAM, DAILY
     Route: 065
  2. BUPIVACAINE [Suspect]
     Active Substance: BUPIVACAINE
     Indication: Pain
     Dosage: 0.6MG/DAY
  3. ZICONOTIDE [Suspect]
     Active Substance: ZICONOTIDE
     Indication: Pain
     Route: 065

REACTIONS (2)
  - Condition aggravated [Fatal]
  - Drug intolerance [Fatal]
